FAERS Safety Report 21841040 (Version 1)
Quarter: 2023Q1

REPORT INFORMATION
  Report Type: Spontaneous
  Country: US (occurrence: US)
  Receive Date: 20230110
  Receipt Date: 20230110
  Transmission Date: 20230418
  Serious: No
  Sender: FDA-Public Use
  Company Number: US-UNITED THERAPEUTICS-UNT-2023-000257

PATIENT
  Sex: Female
  Weight: 99.773 kg

DRUGS (1)
  1. REMODULIN [Suspect]
     Active Substance: TREPROSTINIL
     Indication: Pulmonary arterial hypertension
     Dosage: 0.014 ?G/KG, CONTINUING
     Route: 041

REACTIONS (4)
  - Headache [Unknown]
  - Hot flush [Unknown]
  - Nausea [Unknown]
  - Decreased appetite [Unknown]
